FAERS Safety Report 16898344 (Version 2)
Quarter: 2019Q4

REPORT INFORMATION
  Report Type: Spontaneous
  Country: US (occurrence: US)
  Receive Date: 20191009
  Receipt Date: 20191019
  Transmission Date: 20200122
  Serious: No
  Sender: FDA-Public Use
  Company Number: US-DRREDDYS-USA/USA/19/0114859

PATIENT
  Age: 35 Year
  Sex: Female
  Weight: 77.3 kg

DRUGS (5)
  1. TESTOSTERONE CIPIONATE [Concomitant]
     Active Substance: TESTOSTERONE
     Indication: TRANSGENDER HORMONAL THERAPY
     Dosage: REDUCED BACK TO HIS PRIOR REGIMEN, EVERY 2 WEEKS
  2. TESTOSTERONE CIPIONATE [Concomitant]
     Active Substance: TESTOSTERONE
     Dosage: EVERY 2 WEEKS
  3. VENLAFAXINE HYDROCHLORIDE. [Suspect]
     Active Substance: VENLAFAXINE HYDROCHLORIDE
     Indication: HOT FLUSH
     Route: 065
  4. TESTOSTERONE CIPIONATE [Concomitant]
     Active Substance: TESTOSTERONE
     Dosage: EVERY 2 WEEKS
  5. TESTOSTERONE CIPIONATE [Concomitant]
     Active Substance: TESTOSTERONE

REACTIONS (3)
  - Feeling jittery [Unknown]
  - Somnolence [Unknown]
  - Drug intolerance [Unknown]
